FAERS Safety Report 9795583 (Version 3)
Quarter: 2014Q1

REPORT INFORMATION
  Report Type: Report from Study
  Country: US (occurrence: US)
  Receive Date: 20140103
  Receipt Date: 20140204
  Transmission Date: 20141002
  Serious: Yes (Other)
  Sender: FDA-Public Use
  Company Number: US-BRISTOL-MYERS SQUIBB COMPANY-19861681

PATIENT
  Age: 37 Year
  Sex: Male
  Weight: 87.5 kg

DRUGS (1)
  1. IPILIMUMAB [Suspect]
     Indication: MALIGNANT MELANOMA
     Dosage: 10MG/KG,Q3WKS,LASE DOSE: 13NOV13?3MG/KG
     Route: 042
     Dates: start: 20131023

REACTIONS (6)
  - Diarrhoea [Recovered/Resolved]
  - Hypokalaemia [Recovering/Resolving]
  - Lipase increased [Recovering/Resolving]
  - Lymphocyte count decreased [Recovering/Resolving]
  - Amylase increased [Recovering/Resolving]
  - Colitis [Recovering/Resolving]
